FAERS Safety Report 5319434-6 (Version None)
Quarter: 2007Q2

REPORT INFORMATION
  Report Type: 
  Country: None (occurrence: None)
  Receive Date: 20070508
  Receipt Date: 20070501
  Transmission Date: 20071010
  Serious: Yes (Hospitalization)
  Sender: FDA-Public Use
  Company Number: US-ELI_LILLY_AND_COMPANY-US200704006086

PATIENT
  Sex: Male

DRUGS (3)
  1. NEURONTIN [Concomitant]
     Indication: MOOD ALTERED
     Dosage: 400 MG, 2/D
  2. SEROQUEL [Concomitant]
     Dosage: 600 MG, DAILY (1/D)
  3. CYMBALTA [Suspect]
     Indication: DEPRESSION
     Dosage: 60 MG, DAILY (1/D)
     Route: 048

REACTIONS (3)
  - DRUG ABUSER [None]
  - HEPATIC ENZYME INCREASED [None]
  - SUICIDAL IDEATION [None]
